FAERS Safety Report 20238779 (Version 2)
Quarter: 2022Q3

REPORT INFORMATION
  Report Type: Spontaneous
  Country: US (occurrence: US)
  Receive Date: 20211228
  Receipt Date: 20220803
  Transmission Date: 20221027
  Serious: Yes (Other)
  Sender: FDA-Public Use
  Company Number: US-JNJFOC-20211231905

PATIENT
  Sex: Male
  Weight: 242 kg

DRUGS (4)
  1. INVEGA SUSTENNA [Suspect]
     Active Substance: PALIPERIDONE PALMITATE
     Indication: Product used for unknown indication
     Route: 030
  2. INVEGA SUSTENNA [Suspect]
     Active Substance: PALIPERIDONE PALMITATE
  3. INVEGA SUSTENNA [Suspect]
     Active Substance: PALIPERIDONE PALMITATE
  4. MINERALS\VITAMINS [Concomitant]
     Active Substance: MINERALS\VITAMINS
     Dosage: CNC

REACTIONS (17)
  - Multiple sclerosis [Recovering/Resolving]
  - Diabetes mellitus [Recovering/Resolving]
  - Obesity [Recovering/Resolving]
  - Arthralgia [Unknown]
  - Arthralgia [Recovering/Resolving]
  - Dysphonia [Recovering/Resolving]
  - Feeling cold [Unknown]
  - Blood testosterone decreased [Unknown]
  - Asthenia [Unknown]
  - Cardiac disorder [Unknown]
  - Blood disorder [Unknown]
  - Dyspnoea [Recovering/Resolving]
  - Tinnitus [Recovering/Resolving]
  - Anger [Recovering/Resolving]
  - Speech disorder [Recovering/Resolving]
  - Psychiatric symptom [Recovering/Resolving]
  - Weight decreased [Recovering/Resolving]
